FAERS Safety Report 10072172 (Version 1)
Quarter: 2014Q2

REPORT INFORMATION
  Report Type: Spontaneous
  Country: US (occurrence: None)
  Receive Date: 20140409
  Receipt Date: 20140409
  Transmission Date: 20141212
  Serious: Yes (Hospitalization)
  Sender: FDA-Public Use
  Company Number: IPC201403-000146

PATIENT
  Age: 78 Year
  Sex: Female

DRUGS (9)
  1. GABAPENTIN [Suspect]
     Indication: NEURALGIA
     Route: 055
  2. METFORMIN HYDROCHLORIDE [Suspect]
  3. FUROSEMIDE [Suspect]
  4. LISINOPRIL [Suspect]
  5. SIMVASTATIN [Suspect]
  6. CITALOPRAM [Suspect]
  7. FLUTICASONE PROPIONATE [Suspect]
     Route: 055
  8. ALBUTEROL [Suspect]
     Route: 055
  9. METOLAZONE [Suspect]

REACTIONS (5)
  - Myoclonus [None]
  - Renal failure acute [None]
  - Hyperkalaemia [None]
  - Blood sodium decreased [None]
  - Haemodialysis [None]
